FAERS Safety Report 5654108-3 (Version None)
Quarter: 2008Q1

REPORT INFORMATION
  Report Type: 
  Country: None (occurrence: None)
  Receive Date: 20080306
  Receipt Date: 20080225
  Transmission Date: 20080703
  Serious: Yes (Hospitalization)
  Sender: FDA-Public Use
  Company Number: DK-PFIZER INC-2008018871

PATIENT
  Sex: Female
  Weight: 75 kg

DRUGS (5)
  1. CHANTIX [Suspect]
     Indication: EX-SMOKER
     Route: 048
     Dates: start: 20071001, end: 20071101
  2. LITHIUM CARBONATE [Interacting]
  3. METOPROLOL TARTRATE [Concomitant]
     Indication: HYPERTENSION
  4. IMOZOP [Concomitant]
     Route: 048
  5. AFEKSIN [Concomitant]
     Route: 048

REACTIONS (5)
  - DISTURBANCE IN ATTENTION [None]
  - DIZZINESS [None]
  - DRUG INTERACTION [None]
  - FATIGUE [None]
  - SOMNOLENCE [None]
